FAERS Safety Report 5502739-3 (Version None)
Quarter: 2007Q4

REPORT INFORMATION
  Report Type: 
  Country: None (occurrence: None)
  Receive Date: 20071029
  Receipt Date: 20071019
  Transmission Date: 20080405
  Serious: Yes (Hospitalization)
  Sender: FDA-Public Use
  Company Number: 2004-07-1284

PATIENT
  Age: 41 Year
  Sex: Female

DRUGS (5)
  1. PEG-INTRON [Suspect]
     Indication: CHRONIC HEPATITIS
     Dosage: 96 MCG;QD;SC; 48 MCG; ;SC
     Route: 058
     Dates: start: 20040615, end: 20040705
  2. PEG-INTRON [Suspect]
     Indication: CHRONIC HEPATITIS
     Dosage: 96 MCG;QD;SC; 48 MCG; ;SC
     Route: 058
     Dates: start: 20040706
  3. VIRAMIDINE [Suspect]
     Indication: HEPATITIS C
     Dosage: ;BID;PO
     Route: 047
     Dates: start: 20040615
  4. TYLENOL (CAPLET) [Concomitant]
  5. CIPROFLOXACIN [Concomitant]

REACTIONS (1)
  - PELVIC INFLAMMATORY DISEASE [None]
